FAERS Safety Report 14250448 (Version 1)
Quarter: 2017Q4

REPORT INFORMATION
  Report Type: Spontaneous
  Country: US (occurrence: US)
  Receive Date: 20171205
  Receipt Date: 20171205
  Transmission Date: 20180321
  Serious: No
  Sender: FDA-Public Use
  Company Number: US-TEVA-765275USA

PATIENT
  Sex: Female

DRUGS (1)
  1. ALPRAZOLAM. [Suspect]
     Active Substance: ALPRAZOLAM
     Dates: start: 201612

REACTIONS (6)
  - Middle insomnia [Unknown]
  - Feeling abnormal [Unknown]
  - Malaise [Unknown]
  - Agitation [Unknown]
  - Tension [Unknown]
  - Palpitations [Unknown]

NARRATIVE: CASE EVENT DATE: 20170424
